FAERS Safety Report 4456685-7 (Version None)
Quarter: 2004Q3

REPORT INFORMATION
  Report Type: 
  Country: None (occurrence: None)
  Receive Date: 20040923
  Receipt Date: 20040826
  Transmission Date: 20050211
  Serious: Yes (Other)
  Sender: FDA-Public Use
  Company Number: FR-JNJFOC-20040606372

PATIENT
  Sex: Female
  Weight: 99 kg

DRUGS (2)
  1. EPITOMAX [Suspect]
     Route: 049
  2. EPITOMAX [Suspect]
     Indication: MYOCLONIC EPILEPSY
     Route: 049

REACTIONS (15)
  - AMNIOTIC CAVITY INFECTION [None]
  - ASPARTATE AMINOTRANSFERASE INCREASED [None]
  - BRAIN OEDEMA [None]
  - DRUG EXPOSURE DURING PREGNANCY [None]
  - DRUG WITHDRAWAL SYNDROME [None]
  - ESCHERICHIA INFECTION [None]
  - FEEDING PROBLEM IN NEWBORN [None]
  - FOETAL DISTRESS SYNDROME [None]
  - METABOLIC ACIDOSIS [None]
  - PREGNANCY [None]
  - PREMATURE BABY [None]
  - PREMATURE RUPTURE OF MEMBRANES [None]
  - PROTHROMBIN LEVEL DECREASED [None]
  - RUBELLA ANTIBODY POSITIVE [None]
  - UMBILICAL CORD AROUND NECK [None]
